FAERS Safety Report 9702936 (Version 1)
Quarter: 2013Q4

REPORT INFORMATION
  Report Type: Report from Study
  Country: US (occurrence: US)
  Receive Date: 20131121
  Receipt Date: 20131121
  Transmission Date: 20140711
  Serious: Yes (Death)
  Sender: FDA-Public Use
  Company Number: PHEH2013US024369

PATIENT
  Age: 7 Month
  Sex: Male

DRUGS (1)
  1. TOBI [Suspect]
     Indication: ASTHMA
     Dosage: 300 MG, BID

REACTIONS (2)
  - Death [Fatal]
  - Drug administered to patient of inappropriate age [Unknown]
